FAERS Safety Report 7149021-9 (Version None)
Quarter: 2010Q4

REPORT INFORMATION
  Report Type: 
  Country: None (occurrence: None)
  Receive Date: 20101124
  Receipt Date: 20101109
  Transmission Date: 20110411
  Serious: Yes (Disabling)
  Sender: FDA-Public Use
  Company Number: 2010P1002316

PATIENT
  Sex: Male

DRUGS (2)
  1. FENTANYL-50 [Suspect]
     Indication: BACK PAIN
     Dosage: 50 MCG/HR;Q2D; TDER
     Route: 062
     Dates: start: 20030101, end: 20101026
  2. FENTANYL-50 [Suspect]
     Indication: FIBROMYALGIA
     Dosage: 50 MCG/HR;Q2D; TDER
     Route: 062
     Dates: start: 20030101, end: 20101026

REACTIONS (4)
  - ABDOMINAL DISCOMFORT [None]
  - IMPAIRED WORK ABILITY [None]
  - POISONING [None]
  - VEIN DISCOLOURATION [None]
